FAERS Safety Report 5811943-6 (Version None)
Quarter: 2008Q3

REPORT INFORMATION
  Report Type: 
  Country: None (occurrence: None)
  Receive Date: 20080716
  Receipt Date: 20080703
  Transmission Date: 20090109
  Serious: Yes (Hospitalization)
  Sender: FDA-Public Use
  Company Number: JP-ELI_LILLY_AND_COMPANY-JP200804004996

PATIENT
  Sex: Male
  Weight: 47.8 kg

DRUGS (1)
  1. GEMCITABINE HCL [Suspect]
     Indication: GALLBLADDER CANCER RECURRENT
     Dosage: 1400 MG, OTHER
     Route: 042
     Dates: start: 20070530, end: 20070530

REACTIONS (1)
  - MALAISE [None]
